FAERS Safety Report 9354324 (Version 1)
Quarter: 2013Q2

REPORT INFORMATION
  Report Type: Spontaneous
  Country: DK (occurrence: None)
  Receive Date: 20130613
  Receipt Date: 20130613
  Transmission Date: 20140414
  Serious: Yes (Hospitalization)
  Sender: FDA-Public Use
  Company Number: ALLO20130009

PATIENT
  Age: 74 Year
  Sex: Female

DRUGS (8)
  1. ALLOPURINOL TABLETS (ALLOPURINOL) (TABLETS) [Suspect]
     Indication: PRODUCT USED FOR UNKNOWN INDICATION
     Route: 048
  2. AMLODIPINE BESYLATE TABLETS (AMLODIPINE BESILATE) (TABLETS) (AMLODIPINE BESILATE) [Concomitant]
  3. FUROSEMIDE TABLETS (FUROSEMIDE) (TABLETS) (FUROSEMIDE) [Concomitant]
  4. WARFARIN (WARFARIN) (UNKNOWN) (WARFARIN) [Concomitant]
  5. ESTROGEN (ESTRADIOL) (UNKNOWN) (ESTRADIOL) [Concomitant]
  6. SOLIFENACIN (SOLIFENACIN) (UNKNOWN) (SOLIFENACIN) [Concomitant]
  7. MAGNESIUM OXIDE (MAGNESIUM OXIDE) (UNKNOWN) (MAGNESIUM OXIDE) [Concomitant]
  8. METOPROLOL (METOPROLOL) (UNKNOWN) (METOPROLOL) [Concomitant]

REACTIONS (9)
  - Drug reaction with eosinophilia and systemic symptoms [None]
  - Pyrexia [None]
  - Malaise [None]
  - Confusional state [None]
  - Haemoglobin decreased [None]
  - Blood creatinine increased [None]
  - Alanine aminotransferase increased [None]
  - Blood bilirubin increased [None]
  - Rash maculo-papular [None]
